FAERS Safety Report 8538534-0 (Version None)
Quarter: 2012Q3

REPORT INFORMATION
  Report Type: 
  Country: None (occurrence: None)
  Receive Date: 20120718
  Receipt Date: 20120718
  Transmission Date: 20120928
  Serious: Yes (Disabling, Other)
  Sender: FDA-Public Use
  Company Number: None

PATIENT
  Sex: Male
  Weight: 90.7194 kg

DRUGS (2)
  1. MELOXICAM [Suspect]
     Indication: ARTHRITIS
     Dosage: ONE DAILY ORALLY
     Route: 048
     Dates: start: 20120315
  2. MELOXICAM [Suspect]
     Indication: ARTHRITIS
     Dosage: ONE DAILY ORALLY
     Route: 048
     Dates: start: 20120530

REACTIONS (5)
  - PAIN IN EXTREMITY [None]
  - ONYCHOMADESIS [None]
  - ARTHRALGIA [None]
  - MUSCULOSKELETAL PAIN [None]
  - OEDEMA PERIPHERAL [None]
